FAERS Safety Report 5190000-9 (Version None)
Quarter: 2006Q4

REPORT INFORMATION
  Report Type: 
  Country: None (occurrence: None)
  Receive Date: 20061221
  Receipt Date: 20061213
  Transmission Date: 20070319
  Serious: Yes (Hospitalization)
  Sender: FDA-Public Use
  Company Number: FR-ELI_LILLY_AND_COMPANY-FR200612001883

PATIENT
  Age: 83 Year
  Sex: Female

DRUGS (8)
  1. PROZAC [Suspect]
     Indication: DEPRESSION
     Dosage: 0.5 D/F, DAILY (1/D)
     Route: 048
     Dates: end: 20060804
  2. SERETIDE ^ALLEN + HANBURYS LTD^ [Concomitant]
     Dosage: UNK, UNK
     Route: 055
  3. LEXOMIL [Concomitant]
     Dosage: 0.5 D/F, DAILY (1/D)
     Route: 048
  4. PERSANTINE [Concomitant]
     Dosage: 75 MG, DAILY (1/D)
     Route: 048
  5. ODRIK [Concomitant]
     Dosage: 2 MG, DAILY (1/D)
     Route: 048
  6. EUPANTOL [Concomitant]
     Dosage: UNK, UNK
     Route: 048
  7. CACIT D3 [Concomitant]
     Route: 048
  8. TEMESTA                                 /NET/ [Concomitant]
     Route: 048

REACTIONS (3)
  - FALL [None]
  - GENERAL PHYSICAL CONDITION ABNORMAL [None]
  - HYPONATRAEMIA [None]
